FAERS Safety Report 18956357 (Version 1)
Quarter: 2021Q1

REPORT INFORMATION
  Report Type: Other
  Country: PT (occurrence: PT)
  Receive Date: 20210302
  Receipt Date: 20210302
  Transmission Date: 20210420
  Serious: Yes (Other)
  Sender: FDA-Public Use
  Company Number: PT-ROCHE-2776978

PATIENT

DRUGS (2)
  1. RITUXIMAB. [Suspect]
     Active Substance: RITUXIMAB
     Indication: PRODUCT USED FOR UNKNOWN INDICATION
     Dosage: 1000 MG, DAY 1 AND DAY 15 (JOINT INVOLVEMENT)
     Route: 065
  2. RITUXIMAB. [Suspect]
     Active Substance: RITUXIMAB
     Dosage: 375 MG/M2 OF BODY SURFACE PER WEEK FOR 4 WEEKS (REMAINING INVOLVEMENT)
     Route: 065

REACTIONS (2)
  - Post procedural pruritus [Unknown]
  - Hypogammaglobulinaemia [Unknown]
